FAERS Safety Report 5224683-1 (Version None)
Quarter: 2007Q1

REPORT INFORMATION
  Report Type: 
  Country: None (occurrence: None)
  Receive Date: 20070129
  Receipt Date: 20070129
  Transmission Date: 20070707
  Serious: Yes (Life-Threatening, Hospitalization)
  Sender: FDA-Public Use
  Company Number: None

PATIENT
  Age: 65 Year
  Sex: Male
  Weight: 106.7767 kg

DRUGS (1)
  1. METHOTREXATE [Suspect]
     Indication: SCLERITIS
     Dosage: 25MG EVERY WEEK SQ
     Route: 058
     Dates: start: 20061006, end: 20061211

REACTIONS (19)
  - BACK PAIN [None]
  - BACTERIA URINE [None]
  - BRONCHOPNEUMONIA [None]
  - CHILLS [None]
  - DIARRHOEA [None]
  - DRUG TOXICITY [None]
  - DYSPNOEA [None]
  - HYPOTENSION [None]
  - LUNG INFILTRATION [None]
  - ORAL CANDIDIASIS [None]
  - OXYGEN SATURATION DECREASED [None]
  - PANCYTOPENIA [None]
  - PRODUCTIVE COUGH [None]
  - PULMONARY TOXICITY [None]
  - PYREXIA [None]
  - RESPIRATORY DISORDER [None]
  - SKIN ULCER [None]
  - TACHYCARDIA [None]
  - WOUND SECRETION [None]
